FAERS Safety Report 4395255-6 (Version None)
Quarter: 2004Q3

REPORT INFORMATION
  Report Type: 
  Country: None (occurrence: None)
  Receive Date: 20040706
  Receipt Date: 20040622
  Transmission Date: 20050211
  Serious: Yes (Other)
  Sender: FDA-Public Use
  Company Number: 2004220402IN

PATIENT
  Age: 40 Year
  Sex: Male

DRUGS (6)
  1. SOLU-MEDROL [Suspect]
     Indication: BLOOD CREATININE INCREASED
     Dosage: SEE IMAGE
     Route: 042
  2. SOLU-MEDROL [Suspect]
     Indication: BLOOD CREATININE INCREASED
     Dosage: SEE IMAGE
     Route: 042
  3. DELTA-CORTEF [Suspect]
     Indication: IMMUNOSUPPRESSION
     Dosage: 60 MG, QD
  4. AZATHIOPRINE [Suspect]
     Indication: IMMUNOSUPPRESSION
     Dosage: 75 MG, QD
  5. CYCLOSOPORINE (CICLOSPORIN) [Concomitant]
     Indication: IMMUNOSUPPRESSION
     Dosage: 8 MG/KG, QD
  6. MYCOPHENLATE MOFETIL (MYCOPHENOLATE MOFETIL) [Suspect]

REACTIONS (4)
  - COMPLICATIONS OF TRANSPLANTED KIDNEY [None]
  - HERPES ZOSTER [None]
  - INFECTION IN AN IMMUNOCOMPROMISED HOST [None]
  - KIDNEY TRANSPLANT REJECTION [None]
